FAERS Safety Report 19363682 (Version 2)
Quarter: 2023Q1

REPORT INFORMATION
  Report Type: Report from Study
  Country: US (occurrence: US)
  Receive Date: 20210603
  Receipt Date: 20230209
  Transmission Date: 20230418
  Serious: Yes (Other)
  Sender: FDA-Public Use
  Company Number: US-ACADIA PHARMACEUTICALS INC.-ACA-2021-PIM-001959

PATIENT
  Age: 77 Year
  Sex: Female

DRUGS (10)
  1. NUPLAZID [Suspect]
     Active Substance: PIMAVANSERIN TARTRATE
     Indication: Parkinson^s disease
     Dosage: 34 MILLIGRAM, QD
     Route: 048
     Dates: start: 202104
  2. RASAGILINE [Suspect]
     Active Substance: RASAGILINE
     Dosage: 0.5 MG
  3. RASAGILINE [Suspect]
     Active Substance: RASAGILINE
     Dosage: 1 MILLIGRAM
  4. RASAGILINE [Suspect]
     Active Substance: RASAGILINE
     Dosage: 0.5 MG
  5. HUMALOG [Concomitant]
     Active Substance: INSULIN LISPRO
  6. ATORVASTATIN [Concomitant]
     Active Substance: ATORVASTATIN
  7. LEVEMIR [Concomitant]
     Active Substance: INSULIN DETEMIR
  8. METOPROLOL [Concomitant]
     Active Substance: METOPROLOL
  9. VITAMIN D NOS [Concomitant]
     Active Substance: VITAMIN D NOS
  10. LOSARTAN [Concomitant]
     Active Substance: LOSARTAN

REACTIONS (4)
  - Lethargy [Unknown]
  - Cough [Unknown]
  - Hallucination [Unknown]
  - Hallucination, visual [Recovering/Resolving]

NARRATIVE: CASE EVENT DATE: 20230101
